FAERS Safety Report 8853506 (Version 2)
Quarter: 2012Q4

REPORT INFORMATION
  Report Type: 
  Country: US (occurrence: US)
  Receive Date: 20121023
  Receipt Date: 20121212
  Transmission Date: 20130627
  Serious: No
  Sender: FDA-Public Use
  Company Number: US-BIOGENIDEC-2012BI044665

PATIENT
  Sex: Female
  Weight: 43 kg

DRUGS (17)
  1. TYSABRI [Suspect]
     Indication: RELAPSING-REMITTING MULTIPLE SCLEROSIS
     Route: 042
     Dates: start: 20100827, end: 20110826
  2. TYSABRI [Suspect]
     Indication: RELAPSING-REMITTING MULTIPLE SCLEROSIS
     Route: 042
     Dates: start: 20120503
  3. MINOCYCLINE [Concomitant]
     Route: 048
  4. STRONTIUM CHLORIDE [Concomitant]
  5. NALTREXONE [Concomitant]
  6. OXYBUTYNIN [Concomitant]
     Route: 048
  7. BACLOFEN [Concomitant]
     Route: 048
  8. BENADRYL [Concomitant]
     Indication: INFUSION RELATED REACTION
     Route: 042
  9. CHOLECALCIFEROL [Concomitant]
     Route: 048
  10. FISH OIL [Concomitant]
     Route: 048
  11. B COMPLEX VITAMIN [Concomitant]
     Route: 048
  12. EPIPEN [Concomitant]
     Indication: ARTHROPOD STING
  13. MAGNESIUM ACETATE [Concomitant]
     Route: 048
  14. VITAMIN C [Concomitant]
     Route: 048
  15. CALCIUM ASCORBATE [Concomitant]
     Route: 048
  16. VITAMIN E [Concomitant]
  17. ALPHA LIPOIC ACID [Concomitant]
     Route: 048

REACTIONS (5)
  - Multiple sclerosis [Unknown]
  - Fracture [Unknown]
  - Inflammation [Not Recovered/Not Resolved]
  - Malaise [Unknown]
  - Drug ineffective [Not Recovered/Not Resolved]
